FAERS Safety Report 9410241 (Version 2)
Quarter: 2013Q3

REPORT INFORMATION
  Report Type: Spontaneous
  Country: BE (occurrence: BE)
  Receive Date: 20130719
  Receipt Date: 20130803
  Transmission Date: 20140515
  Serious: Yes (Life-Threatening, Hospitalization, Other)
  Sender: FDA-Public Use
  Company Number: BE-B.I. PHARMACEUTICALS,INC./RIDGEFIELD-2013-BL-00316BL

PATIENT
  Age: 77 Year
  Sex: Male

DRUGS (10)
  1. PRADAXA [Suspect]
     Dosage: 150 MG
     Route: 048
     Dates: start: 20121025, end: 201304
  2. PRADAXA [Suspect]
     Route: 048
     Dates: start: 201304
  3. PRADAXA [Suspect]
     Route: 048
  4. NOBITEN [Concomitant]
     Dosage: DAILY DOSE: 28X5
  5. MINITRAN [Concomitant]
     Dosage: STRENGHT: 10
  6. GLUCOPHAGE [Concomitant]
     Dosage: STRENTH: 500
  7. PLAVIX [Concomitant]
     Dosage: STRENGHT: 75
  8. ZOCOR [Concomitant]
     Dosage: STRENGTH: 40
  9. NOVONORM [Concomitant]
     Dosage: STRENGTH: 0.5
  10. BURINEX [Concomitant]

REACTIONS (3)
  - Gastric haemorrhage [Not Recovered/Not Resolved]
  - Myocardial infarction [Not Recovered/Not Resolved]
  - Haemorrhage [Not Recovered/Not Resolved]
